FAERS Safety Report 25792329 (Version 4)
Quarter: 2025Q4

REPORT INFORMATION
  Report Type: Spontaneous
  Country: JP (occurrence: JP)
  Receive Date: 20250911
  Receipt Date: 20251217
  Transmission Date: 20260117
  Serious: Yes (Death, Life-Threatening, Hospitalization, Other)
  Sender: PFIZER
  Company Number: JP-PFIZER INC-202500177233

PATIENT
  Age: 72 Year
  Sex: Female
  Weight: 55.2 kg

DRUGS (32)
  1. ELREXFIO [Suspect]
     Active Substance: ELRANATAMAB-BCMM
     Indication: Plasma cell myeloma
     Dosage: 12 MG, SINGLE
     Route: 058
     Dates: start: 20250610, end: 20250610
  2. ELREXFIO [Suspect]
     Active Substance: ELRANATAMAB-BCMM
     Dosage: 32 MG, SINGLE
     Route: 058
     Dates: start: 20250613, end: 20250613
  3. ELREXFIO [Suspect]
     Active Substance: ELRANATAMAB-BCMM
     Dosage: 76 MG, SINGLE
     Route: 058
     Dates: start: 20250624, end: 20250624
  4. ELREXFIO [Suspect]
     Active Substance: ELRANATAMAB-BCMM
     Dosage: 76 MG, SINGLE
     Dates: start: 20250701, end: 20250701
  5. ELREXFIO [Suspect]
     Active Substance: ELRANATAMAB-BCMM
     Dosage: 76 MG
     Route: 058
     Dates: start: 20250715
  6. ELREXFIO [Suspect]
     Active Substance: ELRANATAMAB-BCMM
     Dosage: 76 MG
     Route: 058
     Dates: start: 20250805
  7. RABEPRAZOLE SODIUM [Concomitant]
     Active Substance: RABEPRAZOLE SODIUM
     Dosage: 20 MG, 1X/DAY (AFTER BREAKFAST)
  8. DROXIDOPA [Concomitant]
     Active Substance: DROXIDOPA
     Dosage: 200 MG, 1X/DAY (AFTER BREAKFAST ON DIALYSIS DAYS ONLY)
  9. BROTIZOLAM [Concomitant]
     Active Substance: BROTIZOLAM
     Dosage: 0.25 MG, 1X/DAY (AFTER DINNER)
  10. MIROGABALIN BESYLATE [Concomitant]
     Active Substance: MIROGABALIN BESYLATE
     Dosage: 7.5 MG, 1X/DAY (AFTER DINNER)
  11. ROSUVASTATIN CALCIUM [Concomitant]
     Active Substance: ROSUVASTATIN CALCIUM
     Dosage: 2.5 MG, 1X/DAY (AFTER DINNER)
  12. SODIUM PICOSULFATE [Concomitant]
     Active Substance: SODIUM PICOSULFATE
     Indication: Constipation
     Dosage: UNK, AS NEEDED
  13. AMITIZA [Concomitant]
     Active Substance: LUBIPROSTONE
     Dosage: 24 UG, 2X/DAY (AFTER BREAKFAST AND DINNER)
  14. BELSOMRA [Concomitant]
     Active Substance: SUVOREXANT
     Dosage: 10 MG, 1X/DAY (AT BEDTIME)
  15. AMEZINIUM METILSULFATE [Concomitant]
     Active Substance: AMEZINIUM METILSULFATE
     Dosage: AT THE TIME OF DIALYSIS
  16. LACTULOSE [Concomitant]
     Active Substance: LACTULOSE
     Dosage: 12 G, 2X/DAY (AFTER BREAKFAST AND DINNER)
  17. DIMETHICONE [Concomitant]
     Active Substance: DIMETHICONE
     Dosage: 40 MG, 3X/DAY (AFTER MEAL)
  18. MAGNESIUM OXIDE [Concomitant]
     Active Substance: MAGNESIUM OXIDE
     Dosage: 330 MG, 1X/DAY (AFTER DINNER)
  19. RUPAFIN [Concomitant]
     Active Substance: RUPATADINE FUMARATE
     Dosage: 10 MG, 1X/DAY (AFTER DINNER)
  20. NALFURAFINE HYDROCHLORIDE OD [Concomitant]
     Dosage: 5 UG, 1X/DAY (AFTER DINNER)
  21. SHAKUYAKUKANZOTO [Concomitant]
     Active Substance: HERBALS
     Dosage: 2.5 G, 1X/DAY (AFTER DINNER)
  22. TENAPANOR HYDROCHLORIDE [Concomitant]
     Active Substance: TENAPANOR HYDROCHLORIDE
     Dosage: 50 MG, DAILY (30 MG JUST BEFORE BREAKFAST, 20 MG JUST BEFORE DINNER)
  23. MIDODRINE HYDROCHLORIDE [Concomitant]
     Active Substance: MIDODRINE HYDROCHLORIDE
     Dosage: UNK, AS NEEDED
  24. ENARODUSTAT [Concomitant]
     Active Substance: ENARODUSTAT
     Dosage: 8 MG, 1X/DAY (AT BEDTIME)
  25. WARFARIN [Concomitant]
     Active Substance: WARFARIN
     Dosage: 1 MG, 1X/DAY (AFTER BREAKFAST)
  26. DIMEMORFAN PHOSPHATE [Concomitant]
     Active Substance: DIMEMORFAN PHOSPHATE
     Dosage: 10 MG, 3X/DAY (AFTER MEAL)
  27. CARBOCYSTEINE [Concomitant]
     Active Substance: CARBOCYSTEINE
     Dosage: 500 MG, 3X/DAY (AFTER MEAL)
  28. FLUTICASONE FUROATE\VILANTEROL TRIFENATATE [Concomitant]
     Active Substance: FLUTICASONE FUROATE\VILANTEROL TRIFENATATE
     Dosage: UNK, 1X/DAY (IN THE MORNING)
  29. AMBROXOL HYDROCHLORIDE [Concomitant]
     Active Substance: AMBROXOL HYDROCHLORIDE
     Dosage: 15 MG, 3X/DAY (AFTER MEAL)
  30. ERYTHROCIN [ERYTHROMYCIN STEARATE] [Concomitant]
     Dosage: 100 MG, 2X/DAY (AFTER BREAKFAST AND DINNER)
  31. LACTULOSE [Concomitant]
     Active Substance: LACTULOSE
     Dosage: UNK
     Route: 048
  32. MAGNESIUM OXIDE [Concomitant]
     Active Substance: MAGNESIUM OXIDE
     Dosage: UNK
     Route: 048

REACTIONS (8)
  - Immune effector cell-associated neurotoxicity syndrome [Fatal]
  - Pneumonia bacterial [Fatal]
  - Septic shock [Fatal]
  - Hypoglobulinaemia [Fatal]
  - Cytokine release syndrome [Unknown]
  - Blood immunoglobulin G decreased [Unknown]
  - Status epilepticus [Unknown]
  - Cerebral infarction [Unknown]

NARRATIVE: CASE EVENT DATE: 20250611
